FAERS Safety Report 21996857 (Version 1)
Quarter: 2023Q1

REPORT INFORMATION
  Report Type: Spontaneous
  Country: SI (occurrence: SI)
  Receive Date: 20230215
  Receipt Date: 20230215
  Transmission Date: 20230417
  Serious: Yes (Hospitalization, Other)
  Sender: FDA-Public Use
  Company Number: SI-BoehringerIngelheim-2023-BI-217964

PATIENT
  Age: 87 Year
  Sex: Male

DRUGS (4)
  1. DABIGATRAN [Suspect]
     Active Substance: DABIGATRAN
     Indication: Atrial fibrillation
  2. DABIGATRAN [Suspect]
     Active Substance: DABIGATRAN
  3. PERINDOPRIL [Concomitant]
     Active Substance: PERINDOPRIL
     Indication: Product used for unknown indication
  4. METFORMIN [Concomitant]
     Active Substance: METFORMIN HYDROCHLORIDE
     Indication: Product used for unknown indication

REACTIONS (2)
  - Cerebral haemorrhage [Recovered/Resolved]
  - Anticoagulation drug level increased [Recovered/Resolved]
